FAERS Safety Report 12758984 (Version 1)
Quarter: 2016Q3

REPORT INFORMATION
  Report Type: Spontaneous
  Country: US (occurrence: US)
  Receive Date: 20160919
  Receipt Date: 20160919
  Transmission Date: 20161109
  Serious: Yes (Other)
  Sender: FDA-Public Use
  Company Number: US-TORRENT-00001281

PATIENT
  Sex: Female
  Weight: 85 kg

DRUGS (1)
  1. ESOMEPRAZOLE MAGNESIUM D/R [Suspect]
     Active Substance: ESOMEPRAZOLE MAGNESIUM
     Indication: PRODUCT USED FOR UNKNOWN INDICATION
     Dosage: 1 CAPSULE DAILY
     Dates: start: 20160511, end: 201608

REACTIONS (5)
  - Muscle spasms [Unknown]
  - Paraesthesia [Unknown]
  - Atrial fibrillation [Unknown]
  - Asthenia [Unknown]
  - Dyspnoea [Unknown]
